FAERS Safety Report 17062899 (Version 1)
Quarter: 2019Q4

REPORT INFORMATION
  Report Type: Spontaneous
  Country: US (occurrence: US)
  Receive Date: 20191122
  Receipt Date: 20191122
  Transmission Date: 20200122
  Serious: Yes (Hospitalization)
  Sender: FDA-Public Use
  Company Number: US-BIOGEN-2019BI00809525

PATIENT
  Sex: Female

DRUGS (1)
  1. TECFIDERA [Suspect]
     Active Substance: DIMETHYL FUMARATE
     Indication: MULTIPLE SCLEROSIS
     Route: 065
     Dates: start: 20180727

REACTIONS (5)
  - Asthenia [Unknown]
  - Vaginal infection [Unknown]
  - Pneumonia [Unknown]
  - Gastric disorder [Not Recovered/Not Resolved]
  - Weight increased [Unknown]
